FAERS Safety Report 11708411 (Version 2)
Quarter: 2017Q3

REPORT INFORMATION
  Report Type: Report from Study
  Country: US (occurrence: US)
  Receive Date: 20151107
  Receipt Date: 20170728
  Transmission Date: 20171127
  Serious: Yes (Other)
  Sender: FDA-Public Use
  Company Number: US-CIPLA LTD.-2015US08409

PATIENT

DRUGS (3)
  1. LAPATINIB [Suspect]
     Active Substance: LAPATINIB
     Indication: PANCREATIC CARCINOMA METASTATIC
     Dosage: 1250 MG, DAILY
     Route: 048
  2. GEMCITABINE [Suspect]
     Active Substance: GEMCITABINE\GEMCITABINE HYDROCHLORIDE
     Indication: ADENOCARCINOMA PANCREAS
     Dosage: UNK
     Route: 065
  3. CAPECITABINE. [Suspect]
     Active Substance: CAPECITABINE
     Indication: PANCREATIC CARCINOMA METASTATIC
     Dosage: 1000 MG/M2, BID, ON DAYS 1 TO 14 OF 21 DAY CYCLE
     Route: 048

REACTIONS (4)
  - Vomiting [Unknown]
  - Disease progression [Unknown]
  - Nausea [Unknown]
  - Drug ineffective [Unknown]
